FAERS Safety Report 6694545-1 (Version None)
Quarter: 2010Q2

REPORT INFORMATION
  Report Type: 
  Country: None (occurrence: None)
  Receive Date: 20100423
  Receipt Date: 20100414
  Transmission Date: 20101027
  Serious: Yes (Other)
  Sender: FDA-Public Use
  Company Number: HK-JNJFOC-20100404194

PATIENT
  Age: 62 Year
  Sex: Female

DRUGS (4)
  1. REMICADE [Suspect]
     Indication: RHEUMATOID ARTHRITIS
     Dosage: 12 DOSES RECEIVED IN TOTAL
     Route: 042
  2. RITUXIMAB [Concomitant]
     Indication: RHEUMATOID ARTHRITIS
  3. RITUXIMAB [Concomitant]
  4. RITUXIMAB [Concomitant]

REACTIONS (1)
  - LUNG NEOPLASM MALIGNANT [None]
